FAERS Safety Report 7806725-X (Version None)
Quarter: 2011Q4

REPORT INFORMATION
  Report Type: 
  Country: None (occurrence: None)
  Receive Date: 20111011
  Receipt Date: 20111011
  Transmission Date: 20120403
  Serious: Yes (Hospitalization)
  Sender: FDA-Public Use
  Company Number: PHHO2007US11634

PATIENT
  Sex: Female
  Weight: 115.6 kg

DRUGS (2)
  1. GILENYA [Suspect]
     Indication: MULTIPLE SCLEROSIS
     Dosage: 1.25 MG, UNK
     Route: 048
     Dates: start: 20070711, end: 20070711
  2. LEXAPRO [Concomitant]
     Indication: ANXIETY

REACTIONS (6)
  - ATRIOVENTRICULAR BLOCK SECOND DEGREE [None]
  - PALPITATIONS [None]
  - CARDIAC FLUTTER [None]
  - FATIGUE [None]
  - IRON DEFICIENCY ANAEMIA [None]
  - CHEST DISCOMFORT [None]
